FAERS Safety Report 14067632 (Version 1)
Quarter: 2017Q4

REPORT INFORMATION
  Report Type: Spontaneous
  Country: CN (occurrence: CN)
  Receive Date: 20171010
  Receipt Date: 20171010
  Transmission Date: 20180321
  Serious: Yes (Hospitalization)
  Sender: FDA-Public Use
  Company Number: CN-ROCHE-2000850

PATIENT
  Age: 43 Year
  Sex: Male
  Weight: 74 kg

DRUGS (3)
  1. ROCEPHIN [Suspect]
     Active Substance: CEFTRIAXONE SODIUM
     Indication: GONORRHOEA
     Route: 041
     Dates: start: 20170723, end: 20170723
  2. LEVOFLOXACIN MESYLATE [Concomitant]
     Active Substance: LEVOFLOXACIN
     Route: 041
  3. SODIUM CHLORIDE. [Concomitant]
     Active Substance: SODIUM CHLORIDE
     Route: 041
     Dates: start: 20170723, end: 20170723

REACTIONS (4)
  - Erythema [Recovered/Resolved]
  - Oedema mucosal [Recovered/Resolved]
  - Skin reaction [Recovering/Resolving]
  - Skin swelling [Recovered/Resolved]

NARRATIVE: CASE EVENT DATE: 20170723
